FAERS Safety Report 6437391-6 (Version None)
Quarter: 2009Q4

REPORT INFORMATION
  Report Type: 
  Country: None (occurrence: None)
  Receive Date: 20091112
  Receipt Date: 20091104
  Transmission Date: 20100525
  Serious: Yes (Death, Hospitalization)
  Sender: FDA-Public Use
  Company Number: IN-JNJFOC-20090504490

PATIENT
  Age: 55 Year
  Sex: Male

DRUGS (2)
  1. REOPRO [Suspect]
     Dosage: UNSPECIFIED INFUSION
     Route: 042
  2. REOPRO [Suspect]
     Indication: CORONARY ANGIOPLASTY
     Route: 042

REACTIONS (2)
  - CARDIAC ARREST [None]
  - GENERAL PHYSICAL CONDITION ABNORMAL [None]
